FAERS Safety Report 13856608 (Version 1)
Quarter: 2017Q3

REPORT INFORMATION
  Report Type: Spontaneous
  Country: US (occurrence: US)
  Receive Date: 20170810
  Receipt Date: 20170810
  Transmission Date: 20171127
  Serious: No
  Sender: FDA-Public Use
  Company Number: US-ROCHE-1380408

PATIENT
  Age: 62 Year
  Sex: Male

DRUGS (1)
  1. TAMIFLU [Suspect]
     Active Substance: OSELTAMIVIR PHOSPHATE
     Indication: INFLUENZA
     Dosage: THREE-FOUR DOSES OF THE MEDICATION, FIVE DOSES
     Route: 065

REACTIONS (4)
  - Rhinorrhoea [Unknown]
  - Nasal oedema [Unknown]
  - Eye swelling [Unknown]
  - Ocular hyperaemia [Unknown]
